FAERS Safety Report 23223021 (Version 1)
Quarter: 2023Q4

REPORT INFORMATION
  Report Type: Report from Study
  Country: IT (occurrence: IT)
  Receive Date: 20231123
  Receipt Date: 20231123
  Transmission Date: 20240109
  Serious: Yes (Congenital Anomaly, Other)
  Sender: FDA-Public Use
  Company Number: IT-009507513-2310ITA011743

PATIENT
  Age: 67 Year
  Sex: Female

DRUGS (5)
  1. CARBOPLATIN [Suspect]
     Active Substance: CARBOPLATIN
     Indication: Triple negative breast cancer
     Dosage: TOTAL DAILY DOSE: 120 MILLIGRAM, STRENGTH: 15 AREA UNDER THE CURVE (AUC)
     Route: 042
     Dates: start: 20230517, end: 20230809
  2. TAXOL [Suspect]
     Active Substance: PACLITAXEL
     Indication: Triple negative breast cancer
     Dosage: 135 MILLIGRAM
     Route: 042
     Dates: start: 20230517, end: 20230809
  3. PEMBROLIZUMAB [Suspect]
     Active Substance: PEMBROLIZUMAB
     Indication: Triple negative breast cancer
     Dosage: 200 MILLIGRAM
     Route: 042
     Dates: start: 20230613, end: 20230929
  4. FILGRASTIM [Concomitant]
     Active Substance: FILGRASTIM
     Dosage: UNK
     Dates: start: 20230830, end: 20230903
  5. TAPAZOLE [Concomitant]
     Active Substance: METHIMAZOLE
     Dosage: UNK
     Route: 048
     Dates: start: 20230711, end: 20230929

REACTIONS (6)
  - Neutropenia [Recovered/Resolved]
  - Hyperthyroidism [Recovering/Resolving]
  - Neurotoxicity [Recovering/Resolving]
  - Arthralgia [Recovered/Resolved]
  - Dizziness [Unknown]
  - Erythema [Recovered/Resolved]

NARRATIVE: CASE EVENT DATE: 20230621
